FAERS Safety Report 9771979 (Version 2)
Quarter: 2013Q4

REPORT INFORMATION
  Report Type: Report from Study
  Country: US (occurrence: US)
  Receive Date: 20131219
  Receipt Date: 20131226
  Transmission Date: 20140711
  Serious: Yes (Hospitalization)
  Sender: FDA-Public Use
  Company Number: US-JNJFOC-20131208235

PATIENT
  Age: 18 Year
  Sex: Male
  Weight: 72.4 kg

DRUGS (12)
  1. REMICADE [Suspect]
     Indication: CROHN^S DISEASE
     Route: 042
     Dates: start: 20061113
  2. HUMIRA [Concomitant]
     Route: 065
     Dates: start: 20131117
  3. HUMIRA [Concomitant]
     Route: 065
     Dates: start: 20070901
  4. METHOTREXATE [Concomitant]
     Route: 065
  5. FOLIC ACID [Concomitant]
     Route: 065
  6. MULTIVITAMINS [Concomitant]
     Route: 065
  7. FERROUS SULPHATE [Concomitant]
     Route: 065
  8. ERGOCALCIFEROL [Concomitant]
     Route: 065
  9. ZOFRAN [Concomitant]
     Route: 065
  10. TRAMADOL [Concomitant]
     Route: 065
  11. OXYBUTYNIN [Concomitant]
     Route: 065
  12. HYDROCORTISONE [Concomitant]
     Route: 061

REACTIONS (2)
  - Nephrolithiasis [Recovered/Resolved]
  - Gastrointestinal stoma complication [Recovered/Resolved]
